FAERS Safety Report 4490823-5 (Version None)
Quarter: 2004Q4

REPORT INFORMATION
  Report Type: 
  Country: None (occurrence: None)
  Receive Date: 20041027
  Receipt Date: 20041018
  Transmission Date: 20050328
  Serious: Yes (Other)
  Sender: FDA-Public Use
  Company Number: US-SHR-03-010669

PATIENT
  Age: 56 Year
  Sex: Female
  Weight: 102 kg

DRUGS (1)
  1. CLIMARA [Suspect]
     Indication: HORMONE REPLACEMENT THERAPY
     Dosage: 0.05 MG, CONT, TRANSDERMAL
     Route: 062
     Dates: start: 20020101, end: 20030601

REACTIONS (6)
  - ARTHRALGIA [None]
  - DEPRESSION [None]
  - FLUID RETENTION [None]
  - HYPERTENSION [None]
  - OEDEMA PERIPHERAL [None]
  - WEIGHT INCREASED [None]
